FAERS Safety Report 9158600 (Version 2)
Quarter: 2013Q2

REPORT INFORMATION
  Report Type: Spontaneous
  Country: US (occurrence: US)
  Receive Date: 20130312
  Receipt Date: 20130415
  Transmission Date: 20140414
  Serious: Yes (Other)
  Sender: FDA-Public Use
  Company Number: US-FRI-1000043193

PATIENT
  Age: 68 Year
  Sex: Female

DRUGS (4)
  1. LEXAPRO [Suspect]
     Indication: ANXIETY
     Dosage: 10 MG
     Route: 048
     Dates: end: 20130309
  2. LEXAPRO [Suspect]
     Indication: ANXIETY
     Dosage: 7.5 MG
     Route: 048
     Dates: start: 20130309, end: 20130324
  3. LEXAPRO [Suspect]
     Dosage: 5 MG
     Route: 048
     Dates: start: 20130324, end: 20130406
  4. LEXAPRO [Suspect]
     Dosage: 2.5 MG
     Route: 048
     Dates: start: 20130406

REACTIONS (4)
  - Breast cancer [Recovered/Resolved]
  - Depressed mood [Not Recovered/Not Resolved]
  - Crying [Not Recovered/Not Resolved]
  - Impatience [Not Recovered/Not Resolved]
